FAERS Safety Report 9282224 (Version 1)
Quarter: 2013Q2

REPORT INFORMATION
  Report Type: Spontaneous
  Country: US (occurrence: US)
  Receive Date: 20130510
  Receipt Date: 20130510
  Transmission Date: 20140414
  Serious: No
  Sender: FDA-Public Use
  Company Number: US-PFIZER INC-2013143864

PATIENT
  Age: 46 Year
  Sex: Female
  Weight: 73.92 kg

DRUGS (6)
  1. GABAPENTIN [Suspect]
     Indication: TREMOR
     Dosage: UNK
     Dates: start: 2013, end: 2013
  2. GABAPENTIN [Suspect]
     Indication: PAIN
  3. GABAPENTIN [Suspect]
     Indication: EPILEPSY
  4. LYRICA [Suspect]
     Indication: PARTIAL SEIZURES
     Dosage: UNK
     Dates: start: 201304
  5. KEPPRA [Concomitant]
     Indication: EPILEPSY
     Dosage: 2000 MG/DAY
  6. KEPPRA [Concomitant]
     Indication: MIGRAINE

REACTIONS (4)
  - Heart rate increased [Not Recovered/Not Resolved]
  - Local swelling [Unknown]
  - Weight increased [Unknown]
  - Fatigue [Unknown]
